FAERS Safety Report 6660794-1 (Version None)
Quarter: 2010Q1

REPORT INFORMATION
  Report Type: 
  Country: None (occurrence: None)
  Receive Date: 20100331
  Receipt Date: 20100323
  Transmission Date: 20100710
  Serious: Yes (Hospitalization, Other)
  Sender: FDA-Public Use
  Company Number: US-ROCHE-492249

PATIENT
  Sex: Female
  Weight: 49.4 kg

DRUGS (11)
  1. BONIVA [Suspect]
     Indication: OSTEOPOROSIS
     Dosage: DOSE: 3 MG/ 3 ML
     Route: 042
     Dates: start: 20070101
  2. CALCIUM SUPPLEMENT [Concomitant]
     Dosage: REPORTED AS ^LIQUID FILLED CALCIUM SUPPLEMENT^.
     Dates: start: 20070130
  3. CRESTOR [Concomitant]
  4. PRILOSEC [Concomitant]
  5. ASPIRIN [Concomitant]
  6. XANAX [Concomitant]
  7. DULCOLAX TABLET [Concomitant]
  8. LORAZEPAM [Concomitant]
  9. VITAMIN C [Concomitant]
  10. VITAMIN E [Concomitant]
  11. VITAMIN B COMPLEX TAB [Concomitant]

REACTIONS (31)
  - ABDOMINAL ABSCESS [None]
  - ANXIETY [None]
  - ARTERIAL DISORDER [None]
  - ARTERIOSCLEROSIS [None]
  - ARTHRITIS [None]
  - ATELECTASIS [None]
  - BONE DISORDER [None]
  - CARDIAC IMAGING PROCEDURE NORMAL [None]
  - COMPRESSION FRACTURE [None]
  - DENTAL CARIES [None]
  - DIVERTICULITIS [None]
  - DIVERTICULUM [None]
  - DYSLIPIDAEMIA [None]
  - EMPYEMA [None]
  - FOREIGN BODY REACTION [None]
  - GASTROOESOPHAGEAL REFLUX DISEASE [None]
  - HERNIA [None]
  - ILL-DEFINED DISORDER [None]
  - JOINT CREPITATION [None]
  - LARGE INTESTINE PERFORATION [None]
  - MALNUTRITION [None]
  - OEDEMA [None]
  - PAIN IN JAW [None]
  - PLEURAL EFFUSION [None]
  - PNEUMONIA [None]
  - SEPSIS [None]
  - SPINAL FRACTURE [None]
  - TEMPOROMANDIBULAR JOINT SYNDROME [None]
  - TOOTH DISORDER [None]
  - VITAMIN D DECREASED [None]
  - X-RAY ABNORMAL [None]
